FAERS Safety Report 21212987 (Version 1)
Quarter: 2022Q3

REPORT INFORMATION
  Report Type: Spontaneous
  Country: US (occurrence: None)
  Receive Date: 20220815
  Receipt Date: 20220815
  Transmission Date: 20221026
  Serious: Yes (Hospitalization)
  Sender: FDA-Public Use
  Company Number: None

PATIENT
  Age: 78 Year
  Sex: Female
  Weight: 74.8 kg

DRUGS (2)
  1. BEBTELOVIMAB [Suspect]
     Active Substance: BEBTELOVIMAB
     Indication: SARS-CoV-2 test positive
     Dosage: OTHER FREQUENCY : ONCE;?
     Route: 042
     Dates: start: 20220804
  2. BEBTELOVIMAB [Concomitant]
     Active Substance: BEBTELOVIMAB
     Dates: start: 20220804, end: 20220804

REACTIONS (7)
  - Nausea [None]
  - Infusion related reaction [None]
  - Unresponsive to stimuli [None]
  - Pulse absent [None]
  - Respiratory arrest [None]
  - Atrioventricular block first degree [None]
  - Dehydration [None]

NARRATIVE: CASE EVENT DATE: 20220804
